FAERS Safety Report 21293264 (Version 1)
Quarter: 2022Q3

REPORT INFORMATION
  Report Type: Spontaneous
  Country: US (occurrence: US)
  Receive Date: 20220905
  Receipt Date: 20220905
  Transmission Date: 20221027
  Serious: Yes (Other)
  Sender: FDA-Public Use
  Company Number: US-SA-SAC20220902001367

PATIENT
  Sex: Male

DRUGS (4)
  1. ZANTAC [Suspect]
     Active Substance: RANITIDINE HYDROCHLORIDE
     Dosage: UNK, OVER THE COUNTER ZANTAC FROM APPROXIMATELY 2003 TO 2015
     Route: 048
     Dates: start: 2003, end: 2015
  2. ZANTAC [Suspect]
     Active Substance: RANITIDINE HYDROCHLORIDE
     Dosage: UNK, PRESCRIPTION ZANTAC FROM APPROXIMATELY 2003 TO 2015
     Route: 048
     Dates: start: 2003, end: 2015
  3. RANITIDINE [Suspect]
     Active Substance: RANITIDINE
     Dosage: UNK, PRESCRIPTION RANITIDINE FROM APPROXIMATELY 2003 TO 2015
     Route: 048
     Dates: start: 2003, end: 2015
  4. RANITIDINE [Suspect]
     Active Substance: RANITIDINE
     Dosage: OVER THE COUNTER RANITIDINE FROM APPROXIMATELY 2003 TO 2015
     Route: 048
     Dates: start: 2003, end: 2015

REACTIONS (1)
  - Prostate cancer [Unknown]
